FAERS Safety Report 18915320 (Version 1)
Quarter: 2021Q1

REPORT INFORMATION
  Report Type: Spontaneous
  Country: US (occurrence: US)
  Receive Date: 20210218
  Receipt Date: 20210218
  Transmission Date: 20210420
  Serious: Yes (Hospitalization)
  Sender: FDA-Public Use
  Company Number: None

PATIENT
  Age: 77 Year
  Sex: Male

DRUGS (1)
  1. DAPTOMYCIN. [Suspect]
     Active Substance: DAPTOMYCIN
     Dosage: ?          OTHER STRENGTH:350MG/VIL;?
     Route: 042
     Dates: start: 20201118, end: 20201123

REACTIONS (3)
  - Diabetic foot infection [None]
  - Hepatic enzyme increased [None]
  - Transaminases increased [None]

NARRATIVE: CASE EVENT DATE: 20201123
